FAERS Safety Report 20354198 (Version 1)
Quarter: 2022Q1

REPORT INFORMATION
  Report Type: Other
  Country: US (occurrence: None)
  Receive Date: 20220120
  Receipt Date: 20220120
  Transmission Date: 20220423
  Serious: Yes (Hospitalization, Other)
  Sender: FDA-Public Use
  Company Number: US-ROCHE-3000254

PATIENT
  Age: 64 Year
  Sex: Female
  Weight: 83.082 kg

DRUGS (24)
  1. OCREVUS [Suspect]
     Active Substance: OCRELIZUMAB
     Indication: Relapsing-remitting multiple sclerosis
     Dosage: STARTED ABOUT 4 YEARS AGO
     Route: 042
  2. AFREZZA [Concomitant]
     Active Substance: INSULIN HUMAN
     Indication: Diabetes mellitus
     Dosage: STARTED ABOUT 3 YEARS AGO  TAKES 3 TO 4 TIMES PER DAY WITH MEALS ACCORDING TO BLOOD SUGAR LEVEL ;ONG
     Route: 055
  3. BACLOFEN [Concomitant]
     Active Substance: BACLOFEN
     Indication: Muscle spasms
     Dosage: STARTED ABOUT 6 YEARS AGO   TAKES MID DAY AND AT NIGHT ;ONGOING: YES
     Route: 048
  4. BENZONATATE [Concomitant]
     Active Substance: BENZONATATE
     Indication: Cough
     Dosage: STARTED ABOUT 1 YEAR AGO   TAKES AS NEEDED ;ONGOING: YES
     Route: 048
     Dates: start: 2020
  5. FENOFIBRATE [Concomitant]
     Active Substance: FENOFIBRATE
     Dosage: STARTED 3 TO 4 YEARS AGO ;ONGOING: YES
     Route: 048
  6. FOLIC ACID [Concomitant]
     Active Substance: FOLIC ACID
     Indication: Blood folate decreased
     Dosage: YES
     Route: 048
     Dates: start: 202112
  7. GABAPENTIN [Concomitant]
     Active Substance: GABAPENTIN
     Indication: Muscle spasms
     Dosage: STARTED ABOUT  10 YEARS  AGO ;ONGOING: YES
     Route: 048
  8. GABAPENTIN [Concomitant]
     Active Substance: GABAPENTIN
     Indication: Neuropathy peripheral
  9. JARDIANCE [Concomitant]
     Active Substance: EMPAGLIFLOZIN
     Indication: Diabetes mellitus
     Dosage: STARTED ABOUT  3 YEARS AGO ;ONGOING: YES
     Route: 048
  10. MECLIZINE [Concomitant]
     Active Substance: MECLIZINE HYDROCHLORIDE
     Indication: Dizziness
     Dosage: AS NEEDED ;ONGOING: YES
     Route: 048
     Dates: start: 1989
  11. MELATONIN [Concomitant]
     Active Substance: MELATONIN
     Indication: Insomnia
     Dosage: YES
     Route: 048
     Dates: start: 1989
  12. NUEDEXTA [Concomitant]
     Active Substance: DEXTROMETHORPHAN HYDROBROMIDE\QUINIDINE SULFATE
     Dosage: STARTED  ABOUT 5 YEARS AGO ;ONGOING: YES
     Route: 048
  13. PRAMIPEXOLE [Concomitant]
     Active Substance: PRAMIPEXOLE
     Indication: Restless legs syndrome
     Dosage: AT BEDTIME ;ONGOING: YES
     Route: 048
     Dates: start: 1989
  14. ROSUVASTATIN [Concomitant]
     Active Substance: ROSUVASTATIN
     Indication: Blood cholesterol increased
     Dosage: STARTED ABOUT 5 YEARS AGO   TAKES IN THE MORNING ;ONGOING: YES
     Route: 048
  15. SANDOSTATIN [Concomitant]
     Active Substance: OCTREOTIDE ACETATE
     Indication: Irritable bowel syndrome
     Dosage: STARTED ABOUT 3 YEARS AGO ;ONGOING: YES
     Route: 030
  16. TRAMADOL [Concomitant]
     Active Substance: TRAMADOL
     Indication: Fibromyalgia
     Dosage: STARTED A LONG TIME AGO  ON UNKNOWN DATE BEFORE OCREVUS   TAKES AS NEEDED FOR PAIN ;ONGOING: YES
     Route: 048
  17. TRAZODONE [Concomitant]
     Active Substance: TRAZODONE HYDROCHLORIDE
     Indication: Insomnia
     Dosage: STARTED  ABOUT 3 YEARS AGO    TAKES 1 OR 2 AS NEEDED ;ONGOING: YES
     Route: 048
  18. TRESIBA [Concomitant]
     Active Substance: INSULIN DEGLUDEC
     Indication: Diabetes mellitus
     Dosage: STARTED 2 YEARS AGO   MAY TAKE HER OFF BECAUSE BLOOD SUGAR IS CONTROLLED ;ONGOING: YES
     Route: 058
  19. TRULICITY [Concomitant]
     Active Substance: DULAGLUTIDE
     Indication: Diabetes mellitus
     Dosage: STARTED ABOUT  3 YEARS  AGO ;ONGOING: YES
     Route: 058
  20. VENLAFAXINE [Concomitant]
     Active Substance: VENLAFAXINE HYDROCHLORIDE
     Indication: Depression
     Dosage: YES
     Route: 048
     Dates: start: 202101
  21. VENLAFAXINE [Concomitant]
     Active Substance: VENLAFAXINE HYDROCHLORIDE
     Dosage: STARTED ABOUT 3 YEARS AGO ;ONGOING: NO
     Route: 048
     Dates: end: 202101
  22. VITAMIN D2 [Concomitant]
     Active Substance: ERGOCALCIFEROL
     Indication: Vitamin D decreased
     Dosage: YES
     Route: 048
     Dates: start: 20211219
  23. LUTEIN ZEAXANTHIN [Concomitant]
     Dosage: STARTED ABOUT 2 YEARS AGO ;ONGOING: YES
     Route: 048
  24. MODERNA COVID-19 VACCINE [Concomitant]
     Active Substance: ELASOMERAN
     Dosage: 1ST SHOT ON AN UNKOWN DATE IN 2021, 2ND SHOT 15-MAY-2021 AND BOOSTER 19-SEP-2021 ;ONGOING: NO
     Route: 030
     Dates: end: 20200919

REACTIONS (6)
  - COVID-19 pneumonia [Recovered/Resolved]
  - Depression [Recovered/Resolved]
  - Blood folate decreased [Unknown]
  - Vitamin D decreased [Unknown]
  - Headache [Recovered/Resolved]
  - Multiple sclerosis relapse [Unknown]

NARRATIVE: CASE EVENT DATE: 20210101
